FAERS Safety Report 15170006 (Version 3)
Quarter: 2018Q3

REPORT INFORMATION
  Report Type: Spontaneous
  Country: US (occurrence: US)
  Receive Date: 20180720
  Receipt Date: 20180726
  Transmission Date: 20181010
  Serious: No
  Sender: FDA-Public Use
  Company Number: US-PFIZER INC-2018290486

PATIENT
  Age: 57 Year
  Sex: Female
  Weight: 58.97 kg

DRUGS (5)
  1. ARMOUR THYROID [Concomitant]
     Active Substance: THYROID, PORCINE
     Indication: HYPOTHYROIDISM
     Dosage: 2 DF, 1X/DAY, (2 TABLETS IN THE MORNING)
     Route: 048
  2. LYRICA [Suspect]
     Active Substance: PREGABALIN
     Indication: BACK PAIN
     Dosage: 50 MG, 3X/DAY
     Dates: start: 20180706
  3. LYRICA [Suspect]
     Active Substance: PREGABALIN
     Indication: SCIATICA
     Dosage: 50 MG, 2X/DAY
  4. LYRICA [Suspect]
     Active Substance: PREGABALIN
     Indication: NEURALGIA
     Dosage: 50 MG, 1X/DAY
  5. LYRICA [Suspect]
     Active Substance: PREGABALIN
     Dosage: 50 MG, UNK
     Route: 048

REACTIONS (5)
  - Off label use [Not Recovered/Not Resolved]
  - Intentional dose omission [Unknown]
  - Frustration tolerance decreased [Not Recovered/Not Resolved]
  - Hypoaesthesia [Not Recovered/Not Resolved]
  - Female orgasmic disorder [Not Recovered/Not Resolved]

NARRATIVE: CASE EVENT DATE: 201807
